FAERS Safety Report 18693169 (Version 1)
Quarter: 2021Q1

REPORT INFORMATION
  Report Type: Spontaneous
  Country: HU (occurrence: HU)
  Receive Date: 20210104
  Receipt Date: 20210104
  Transmission Date: 20210419
  Serious: Yes (Death, Other)
  Sender: FDA-Public Use
  Company Number: HU-CELLTRION INC.-2020HU030988

PATIENT

DRUGS (28)
  1. TRUXIMA [Suspect]
     Active Substance: RITUXIMAB-ABBS
     Dosage: 870 MG (375 MG/M2) ON EVERY OCCASION, CYCLIC
     Route: 042
     Dates: start: 20190806
  2. TRUXIMA [Suspect]
     Active Substance: RITUXIMAB-ABBS
     Dosage: 870 MG (375 MG/M2) ON EVERY OCCASION, CYCLIC
     Route: 042
     Dates: start: 20190930
  3. TRUXIMA [Suspect]
     Active Substance: RITUXIMAB-ABBS
     Dosage: 870 MG (375 MG/M2) SINGLE?TIME TREATMENT
     Route: 042
     Dates: start: 20191230, end: 20191230
  4. MABTHERA [Suspect]
     Active Substance: RITUXIMAB
     Indication: B-CELL LYMPHOMA
     Dosage: GIVEN EVERY TWO MONTHS (5 TIMES IN TOTAL)
     Route: 058
     Dates: start: 20200224
  5. BENDAMUSTINE [Suspect]
     Active Substance: BENDAMUSTINE
     Dosage: TREATED WITH 6 CYCLES (CYCLE 3)
  6. BENDAMUSTINE [Suspect]
     Active Substance: BENDAMUSTINE
     Dosage: TREATED WITH 6 CYCLES (CYCLE 4)
  7. TRUXIMA [Suspect]
     Active Substance: RITUXIMAB-ABBS
     Dosage: 870 MG (375 MG/M2) ON EVERY OCCASION, CYCLIC
     Route: 042
     Dates: start: 20190708
  8. TRUXIMA [Suspect]
     Active Substance: RITUXIMAB-ABBS
     Dosage: 870 MG (375 MG/M2) ON EVERY OCCASION, CYCLIC
     Route: 042
     Dates: start: 20190902
  9. BENDAMUSTINE [Suspect]
     Active Substance: BENDAMUSTINE
     Indication: B-CELL LYMPHOMA
     Dosage: TREATED WITH 6 CYCLES (CYCLE 1)
  10. MABTHERA [Suspect]
     Active Substance: RITUXIMAB
     Dosage: 1400 MG (LAST DOSE: 05?OCT?2020)
     Route: 058
  11. TRUXIMA [Suspect]
     Active Substance: RITUXIMAB-ABBS
     Indication: B-CELL LYMPHOMA
     Dosage: 870 MG (375 MG/M2) ON EVERY OCCASION, CYCLIC
     Route: 042
     Dates: start: 20190617
  12. TRUXIMA [Suspect]
     Active Substance: RITUXIMAB-ABBS
     Dosage: 870 MG (375 MG/M2) ON EVERY OCCASION, CYCLIC
     Route: 042
     Dates: start: 20190617
  13. TRUXIMA [Suspect]
     Active Substance: RITUXIMAB-ABBS
     Dosage: 870 MG (375 MG/M2) ON EVERY OCCASION, CYCLIC
     Route: 042
     Dates: start: 20190708
  14. TRUXIMA [Suspect]
     Active Substance: RITUXIMAB-ABBS
     Dosage: 870 MG (375 MG/M2) ON EVERY OCCASION, CYCLIC
     Route: 042
     Dates: start: 20190902
  15. TRUXIMA [Suspect]
     Active Substance: RITUXIMAB-ABBS
     Dosage: 870 MG (375 MG/M2) ON EVERY OCCASION, CYCLIC
     Route: 042
     Dates: start: 20191028
  16. MABTHERA [Suspect]
     Active Substance: RITUXIMAB
     Dosage: GIVEN EVERY TWO MONTHS (5 TIMES IN TOTAL)
     Route: 058
  17. TRUXIMA [Suspect]
     Active Substance: RITUXIMAB-ABBS
     Dosage: 870 MG (375 MG/M2) ON EVERY OCCASION, CYCLIC
     Route: 042
     Dates: start: 20191028
  18. TRUXIMA [Suspect]
     Active Substance: RITUXIMAB-ABBS
     Dosage: 870 MG (375 MG/M2) SINGLE?TIME TREATMENT
     Route: 042
     Dates: start: 20191230, end: 20191230
  19. BENDAMUSTINE [Suspect]
     Active Substance: BENDAMUSTINE
     Dosage: TREATED WITH 6 CYCLES (CYCLE 6)
  20. MABTHERA [Suspect]
     Active Substance: RITUXIMAB
     Dosage: GIVEN EVERY TWO MONTHS (5 TIMES IN TOTAL)
     Route: 058
  21. TRUXIMA [Suspect]
     Active Substance: RITUXIMAB-ABBS
     Dosage: 870 MG (375 MG/M2) ON EVERY OCCASION, CYCLIC
     Route: 042
     Dates: start: 20190806
  22. TRUXIMA [Suspect]
     Active Substance: RITUXIMAB-ABBS
     Dosage: 870 MG (375 MG/M2) ON EVERY OCCASION, CYCLIC
     Route: 042
     Dates: start: 20190930
  23. TRUXIMA [Suspect]
     Active Substance: RITUXIMAB-ABBS
     Dosage: 870 MG (375 MG/M2) ON EVERY OCCASION, CYCLIC
     Route: 042
     Dates: start: 20190930
  24. BENDAMUSTINE [Suspect]
     Active Substance: BENDAMUSTINE
     Dosage: TREATED WITH 6 CYCLES (CYCLE 2)
  25. MABTHERA [Suspect]
     Active Substance: RITUXIMAB
     Dosage: GIVEN EVERY TWO MONTHS (5 TIMES IN TOTAL)
     Route: 058
  26. MABTHERA [Suspect]
     Active Substance: RITUXIMAB
     Dosage: GIVEN EVERY TWO MONTHS (5 TIMES IN TOTAL)
     Route: 058
  27. TRUXIMA [Suspect]
     Active Substance: RITUXIMAB-ABBS
     Dosage: 870 MG (375 MG/M2) ON EVERY OCCASION, CYCLIC
     Route: 042
     Dates: start: 20190902
  28. BENDAMUSTINE [Suspect]
     Active Substance: BENDAMUSTINE
     Dosage: TREATED WITH 6 CYCLES (CYCLE 5)

REACTIONS (1)
  - Progressive multifocal leukoencephalopathy [Fatal]

NARRATIVE: CASE EVENT DATE: 202008
